FAERS Safety Report 7247606-2 (Version None)
Quarter: 2011Q1

REPORT INFORMATION
  Report Type: 
  Country: None (occurrence: None)
  Receive Date: 20110127
  Receipt Date: 20110118
  Transmission Date: 20110831
  Serious: Yes (Hospitalization)
  Sender: FDA-Public Use
  Company Number: US-ASTRAZENECA-2011SE02922

PATIENT
  Age: 67 Year
  Sex: Female
  Weight: 61.2 kg

DRUGS (5)
  1. PAIN MEDS [Concomitant]
  2. METFORMIN [Concomitant]
     Indication: DIABETES MELLITUS
  3. NEXIUM [Suspect]
     Indication: GASTROOESOPHAGEAL REFLUX DISEASE
     Route: 048
  4. NEXIUM [Suspect]
     Indication: HIATUS HERNIA
     Route: 048
  5. GLUCOPHAGE [Concomitant]
     Indication: DIABETES MELLITUS

REACTIONS (2)
  - BUNDLE BRANCH BLOCK LEFT [None]
  - ATRIOVENTRICULAR BLOCK FIRST DEGREE [None]
